FAERS Safety Report 9564890 (Version 1)
Quarter: 2013Q3

REPORT INFORMATION
  Report Type: Spontaneous
  Country: US (occurrence: US)
  Receive Date: 20130930
  Receipt Date: 20130930
  Transmission Date: 20140515
  Serious: No
  Sender: FDA-Public Use
  Company Number: US-009507513-1309USA013839

PATIENT
  Age: 25 Year
  Sex: Female
  Weight: 85.26 kg

DRUGS (1)
  1. IMPLANON [Suspect]
     Indication: CONTRACEPTION
     Dosage: 3 YEAR IMPLANT IN RIGHT ARM
     Route: 059
     Dates: start: 20130523

REACTIONS (1)
  - Menorrhagia [Unknown]
